FAERS Safety Report 5383064-0 (Version None)
Quarter: 2007Q3

REPORT INFORMATION
  Report Type: 
  Country: None (occurrence: None)
  Receive Date: 20070710
  Receipt Date: 20070625
  Transmission Date: 20080115
  Serious: Yes (Hospitalization)
  Sender: FDA-Public Use
  Company Number: JP-ROCHE-503953

PATIENT
  Age: 69 Year
  Sex: Male

DRUGS (4)
  1. TICLOPIDINE HCL [Suspect]
     Indication: CEREBRAL INFARCTION
     Dosage: DRUG REPORTED AS ^TICLOPIDINE HYDROCHLORIDE^.
     Route: 048
     Dates: start: 20070103, end: 20070124
  2. OLMESARTAN MEDOXOMIL [Concomitant]
     Indication: HYPERTENSIVE NEPHROPATHY
     Route: 048
  3. AMARYL [Concomitant]
     Indication: DIABETES MELLITUS
     Route: 048
  4. GLUCOBAY [Concomitant]
     Indication: DIABETES MELLITUS
     Route: 048

REACTIONS (6)
  - ABDOMINAL PAIN [None]
  - BLOOD ALKALINE PHOSPHATASE INCREASED [None]
  - GAMMA-GLUTAMYLTRANSFERASE INCREASED [None]
  - HEPATIC ENZYME INCREASED [None]
  - NAUSEA [None]
  - TRANSAMINASES INCREASED [None]
